FAERS Safety Report 16065456 (Version 1)
Quarter: 2019Q1

REPORT INFORMATION
  Report Type: Spontaneous
  Country: ES (occurrence: ES)
  Receive Date: 20190313
  Receipt Date: 20190313
  Transmission Date: 20190418
  Serious: Yes (Other)
  Sender: FDA-Public Use
  Company Number: ES-AXELLIA-002308

PATIENT
  Age: 49 Year
  Sex: Female

DRUGS (14)
  1. DELTIUS [Concomitant]
     Active Substance: CHOLECALCIFEROL
  2. QUETIAPINE/QUETIAPINE FUMARATE [Concomitant]
  3. TRAMADOL. [Concomitant]
     Active Substance: TRAMADOL
  4. PREGABALIN. [Concomitant]
     Active Substance: PREGABALIN
  5. BILASTINE [Concomitant]
     Active Substance: BILASTINE
  6. DAPTOMYCIN. [Suspect]
     Active Substance: DAPTOMYCIN
     Indication: ARTHRITIS BACTERIAL
     Route: 042
     Dates: start: 20190117, end: 20190206
  7. OMEPRAZOLE. [Concomitant]
     Active Substance: OMEPRAZOLE
  8. RIVOTRIL [Concomitant]
     Active Substance: CLONAZEPAM
  9. CEFTAROLINE FOSAMIL [Suspect]
     Active Substance: CEFTAROLINE FOSAMIL
     Indication: ARTHRITIS BACTERIAL
     Route: 042
     Dates: start: 20190115, end: 20190206
  10. TAPENTADOL [Concomitant]
     Active Substance: TAPENTADOL
  11. FOLIC ACID. [Concomitant]
     Active Substance: FOLIC ACID
  12. METAMIZOLE SODIUM [Concomitant]
     Active Substance: METAMIZOLE SODIUM
  13. POTASSIUM CHLORIDE. [Concomitant]
     Active Substance: POTASSIUM CHLORIDE
  14. DENOSUMAB [Concomitant]
     Active Substance: DENOSUMAB

REACTIONS (1)
  - Neutropenia [Recovered/Resolved]

NARRATIVE: CASE EVENT DATE: 20190117
